FAERS Safety Report 22313681 (Version 1)
Quarter: 2023Q2

REPORT INFORMATION
  Report Type: Spontaneous
  Country: US (occurrence: US)
  Receive Date: 20230512
  Receipt Date: 20230512
  Transmission Date: 20230722
  Serious: Yes (Other)
  Sender: FDA-Public Use
  Company Number: US-SANOFI-01607126

PATIENT
  Age: 85 Year
  Sex: Male

DRUGS (1)
  1. TOUJEO MAX [Suspect]
     Active Substance: INSULIN GLARGINE
     Indication: Type 2 diabetes mellitus
     Dosage: 160 IU, QD
     Route: 065
     Dates: start: 202305

REACTIONS (2)
  - Pancreatic failure [Unknown]
  - Blood glucose increased [Unknown]
